FAERS Safety Report 16029138 (Version 2)
Quarter: 2019Q2

REPORT INFORMATION
  Report Type: Report from Study
  Country: DE (occurrence: DE)
  Receive Date: 20190304
  Receipt Date: 20190508
  Transmission Date: 20190711
  Serious: Yes (Hospitalization)
  Sender: FDA-Public Use
  Company Number: DE-JNJFOC-20190227272

PATIENT
  Age: 37 Year
  Sex: Female
  Weight: 69.7 kg

DRUGS (2)
  1. ORTOTON PLUS [Concomitant]
     Indication: PRODUCT USED FOR UNKNOWN INDICATION
     Route: 065
  2. GUSELKUMAB [Suspect]
     Active Substance: GUSELKUMAB
     Indication: PSORIASIS
     Route: 058
     Dates: start: 20180926

REACTIONS (10)
  - Insomnia [Unknown]
  - Fatigue [Unknown]
  - Psoriatic arthropathy [Not Recovered/Not Resolved]
  - Decreased appetite [Unknown]
  - Abnormal loss of weight [Unknown]
  - Pyrexia [Recovered/Resolved]
  - Urine analysis abnormal [Not Recovered/Not Resolved]
  - Apathy [Unknown]
  - Asthenia [Recovered/Resolved]
  - Renal pain [Recovered/Resolved]

NARRATIVE: CASE EVENT DATE: 20181223
